FAERS Safety Report 20777307 (Version 2)
Quarter: 2022Q2

REPORT INFORMATION
  Report Type: Spontaneous
  Country: IN (occurrence: IN)
  Receive Date: 20220503
  Receipt Date: 20220509
  Transmission Date: 20220721
  Serious: Yes (Death, Life-Threatening, Hospitalization, Other)
  Sender: FDA-Public Use
  Company Number: IN-MLMSERVICE-20220418-3506913-1

PATIENT
  Age: 35 Year
  Sex: Female

DRUGS (12)
  1. DEXAMETHASONE [Suspect]
     Active Substance: DEXAMETHASONE
     Indication: COVID-19
  2. DEXAMETHASONE [Suspect]
     Active Substance: DEXAMETHASONE
     Dosage: REDUCING THE DOSE
  3. TACROLIMUS [Suspect]
     Active Substance: TACROLIMUS
     Indication: Immunosuppressant drug therapy
  4. MYCOPHENOLATE MOFETIL [Suspect]
     Active Substance: MYCOPHENOLATE MOFETIL
     Indication: Immunosuppressant drug therapy
  5. PIPERACILLIN AND TAZOBACTAM [Suspect]
     Active Substance: PIPERACILLIN SODIUM\TAZOBACTAM SODIUM
     Indication: Pyelonephritis
  6. PREDNISOLONE [Suspect]
     Active Substance: PREDNISOLONE
     Indication: Immunosuppressant drug therapy
     Route: 048
  7. BASILIXIMAB [Suspect]
     Active Substance: BASILIXIMAB
     Indication: Immunosuppressant drug therapy
  8. HEPARIN [Suspect]
     Active Substance: HEPARIN SODIUM
     Indication: COVID-19
  9. OXYGEN [Concomitant]
     Active Substance: OXYGEN
     Indication: Oxygen therapy
     Dosage: INHALATION BY SIMPLE FACE MASK
     Route: 055
  10. INSULIN NOS [Concomitant]
     Active Substance: INSULIN NOS
     Indication: Hyperglycaemia
  11. REMDESIVIR [Concomitant]
     Active Substance: REMDESIVIR
     Indication: COVID-19
     Dosage: NEXT 5 DAYS
  12. REMDESIVIR [Concomitant]
     Active Substance: REMDESIVIR
     Dosage: ON DAY 1

REACTIONS (7)
  - Transplant dysfunction [Fatal]
  - Shock [Fatal]
  - Acute kidney injury [Fatal]
  - Mucormycosis [Fatal]
  - Pyelonephritis [Recovering/Resolving]
  - Escherichia infection [Recovering/Resolving]
  - Off label use [Unknown]
